FAERS Safety Report 7479610-3 (Version None)
Quarter: 2011Q2

REPORT INFORMATION
  Report Type: 
  Country: None (occurrence: None)
  Receive Date: 20110513
  Receipt Date: 20101228
  Transmission Date: 20111010
  Serious: Yes (Hospitalization, Other)
  Sender: FDA-Public Use
  Company Number: US-BAYER-201020257NA

PATIENT
  Age: 20 Year
  Sex: Female
  Weight: 77.273 kg

DRUGS (8)
  1. TRAMADOL HYDROCHLORIDE [Concomitant]
     Dosage: UNK
     Dates: start: 20100202
  2. LEXAPRO [Concomitant]
     Indication: ANXIETY
     Dosage: DAILY DOSE 10 MG
     Route: 048
     Dates: start: 20100218, end: 20100410
  3. DROSPIRENONE AND ETHINYL ESTRADIOL [Suspect]
     Route: 048
     Dates: start: 20080701, end: 20100301
  4. KARIVA [Concomitant]
     Dosage: UNK
     Dates: start: 20100312, end: 20100101
  5. YASMIN [Suspect]
     Route: 048
     Dates: start: 20061001, end: 20080301
  6. LEVETRICATEM [Concomitant]
     Indication: CONVULSION
     Dates: start: 20090201, end: 20090401
  7. HYDROCODONE BITARTRATE AND ACETAMINOPHEN [Concomitant]
     Dosage: UNK
     Dates: start: 20100310, end: 20100318
  8. OXYBUTYNIN [Concomitant]
     Dosage: UNK
     Dates: start: 20100326

REACTIONS (1)
  - CHOLECYSTITIS [None]
